FAERS Safety Report 10797720 (Version 1)
Quarter: 2015Q1

REPORT INFORMATION
  Report Type: Spontaneous
  Country: US (occurrence: US)
  Receive Date: 20150216
  Receipt Date: 20150216
  Transmission Date: 20150721
  Serious: No
  Sender: FDA-Public Use
  Company Number: US-PFIZER INC-2015048825

PATIENT
  Sex: Female

DRUGS (1)
  1. EXEMESTANE. [Suspect]
     Active Substance: EXEMESTANE
     Dosage: UNK

REACTIONS (5)
  - Dizziness [Unknown]
  - Influenza like illness [Unknown]
  - Balance disorder [Unknown]
  - Thinking abnormal [Unknown]
  - Nausea [Unknown]
